FAERS Safety Report 5739246-9 (Version None)
Quarter: 2008Q2

REPORT INFORMATION
  Report Type: 
  Country: None (occurrence: None)
  Receive Date: 20080515
  Receipt Date: 20080507
  Transmission Date: 20081010
  Serious: Yes (Life-Threatening)
  Sender: FDA-Public Use
  Company Number: TH-AMGEN-US278196

PATIENT
  Age: 59 Year
  Sex: Male

DRUGS (6)
  1. NEULASTIM [Suspect]
     Indication: CHEMOTHERAPY
     Route: 058
     Dates: start: 20080413, end: 20080413
  2. RITUXIMAB [Concomitant]
     Dates: start: 20080411
  3. CYCLOPHOSPHAMIDE [Concomitant]
     Dates: start: 20080411
  4. DOXORUBICIN HYDROCHLORIDE [Concomitant]
  5. VINCRISTINE [Concomitant]
  6. PREDNISONE TAB [Concomitant]

REACTIONS (4)
  - ANAPHYLACTIC REACTION [None]
  - CARDIAC ARREST [None]
  - HEPATIC FAILURE [None]
  - RENAL FAILURE [None]
